FAERS Safety Report 18588397 (Version 1)
Quarter: 2020Q4

REPORT INFORMATION
  Report Type: Spontaneous
  Country: US (occurrence: US)
  Receive Date: 20201207
  Receipt Date: 20201207
  Transmission Date: 20210114
  Serious: No
  Sender: FDA-Public Use
  Company Number: US-SIGMAPHARM LABORATORIES, LLC-2020SIG00044

PATIENT
  Sex: Female
  Weight: 36.28 kg

DRUGS (9)
  1. BONE SUPPLEMENTS [Concomitant]
  2. LIOTHYRONINE SODIUM. [Suspect]
     Active Substance: LIOTHYRONINE SODIUM
     Dosage: 7.5 ?G, 1X/DAY
     Route: 048
     Dates: end: 201909
  3. LEVOXYL [Concomitant]
     Active Substance: LEVOTHYROXINE SODIUM
  4. CALCITONIN NASAL SPRAY [Concomitant]
  5. B VITAMINS [Concomitant]
     Active Substance: CYANOCOBALAMIN\DEXPANTHENOL\NIACINAMIDE\PYRIDOXINE HYDROCHLORIDE\RIBOFLAVIN 5^-PHOSPHATE SODIUM\THIAMINE HYDROCHLORIDE\VITAMIN B COMPLEX
  6. VITAMIN D [Concomitant]
     Active Substance: VITAMIN D NOS
  7. BIOIDENTICAL HORMONES [Concomitant]
  8. LIOTHYRONINE SODIUM. [Suspect]
     Active Substance: LIOTHYRONINE SODIUM
     Indication: HYPOTHYROIDISM
     Dosage: 5 ?G, 1X/DAY
     Route: 048
  9. DIGESTIVE ENZYMES [Concomitant]
     Active Substance: UNSPECIFIED INGREDIENT

REACTIONS (7)
  - Weight decreased [Not Recovered/Not Resolved]
  - Therapeutic product ineffective [Recovered/Resolved]
  - Malaise [Unknown]
  - Diarrhoea [Recovering/Resolving]
  - Reaction to excipient [Recovered/Resolved]
  - Insomnia [Not Recovered/Not Resolved]
  - Psoriasis [Recovering/Resolving]

NARRATIVE: CASE EVENT DATE: 2019
